FAERS Safety Report 21164820 (Version 1)
Quarter: 2022Q3

REPORT INFORMATION
  Report Type: Spontaneous
  Country: US (occurrence: None)
  Receive Date: 20220803
  Receipt Date: 20220803
  Transmission Date: 20221027
  Serious: No
  Sender: FDA-Public Use
  Company Number: US-VistaPharm, Inc.-VER202108-001891

PATIENT
  Age: 76 Year
  Sex: Female
  Weight: 79.38 kg

DRUGS (11)
  1. NYSTATIN [Suspect]
     Active Substance: NYSTATIN
     Indication: Upper respiratory fungal infection
     Dosage: UNKNOWN
     Route: 048
     Dates: start: 20210823
  2. NYSTATIN [Suspect]
     Active Substance: NYSTATIN
     Dosage: UNKNOWN
     Route: 048
     Dates: start: 20210824
  3. ZAFIRLUKAST [Concomitant]
     Active Substance: ZAFIRLUKAST
     Indication: Asthma
     Dosage: 20 MG
     Route: 065
  4. LYRICA [Concomitant]
     Active Substance: PREGABALIN
     Indication: Fibromyalgia
     Dosage: 100 MG
     Route: 065
  5. LYRICA [Concomitant]
     Active Substance: PREGABALIN
     Dosage: 150 MG
     Route: 065
  6. FLEXERIL [Concomitant]
     Active Substance: CYCLOBENZAPRINE HYDROCHLORIDE
     Indication: Fibromyalgia
     Dosage: UNKNOWN
     Route: 065
  7. OLMESARTAN [Concomitant]
     Active Substance: OLMESARTAN
     Indication: Hypertension
     Dosage: 40 MG
     Route: 065
  8. AMLODIPINE [Concomitant]
     Active Substance: AMLODIPINE BESYLATE
     Indication: Hypertension
     Dosage: UNKNOWN
     Route: 065
  9. CYMBALTA [Concomitant]
     Active Substance: DULOXETINE HYDROCHLORIDE
     Indication: Product used for unknown indication
     Dosage: UNKNOWN
     Route: 065
  10. AMBIEN [Concomitant]
     Active Substance: ZOLPIDEM TARTRATE
     Indication: Product used for unknown indication
     Dosage: UNKNOWN
     Route: 065
  11. CYCLOBENZAPRINE [Concomitant]
     Active Substance: CYCLOBENZAPRINE
     Indication: Product used for unknown indication
     Dosage: UNKNOWN
     Route: 065

REACTIONS (1)
  - Pruritus [Unknown]

NARRATIVE: CASE EVENT DATE: 20210824
